FAERS Safety Report 8438167-0 (Version None)
Quarter: 2012Q2

REPORT INFORMATION
  Report Type: 
  Country: None (occurrence: None)
  Receive Date: 20120614
  Receipt Date: 20120531
  Transmission Date: 20120825
  Serious: Yes (Hospitalization, Other)
  Sender: FDA-Public Use
  Company Number: JP-VERTEX PHARMACEUTICALS INC.-AE-2012-006307

PATIENT
  Age: 50 Year
  Sex: Male

DRUGS (19)
  1. TELAVIC (TELAPREVIR) [Suspect]
     Route: 048
     Dates: start: 20120206, end: 20120222
  2. RIKKUNSHI-TO [Concomitant]
     Route: 048
     Dates: start: 20120216
  3. TELAVIC (TELAPREVIR) [Suspect]
     Route: 048
     Dates: start: 20120410, end: 20120412
  4. REBETOL [Concomitant]
     Route: 048
     Dates: start: 20120223, end: 20120328
  5. REBETOL [Concomitant]
     Route: 048
     Dates: start: 20120329, end: 20120407
  6. REBETOL [Concomitant]
     Route: 048
     Dates: start: 20120410, end: 20120415
  7. OLMESARTAN MEDOXOMIL [Concomitant]
     Route: 048
  8. REBETOL [Concomitant]
     Indication: HEPATITIS C
     Route: 048
     Dates: start: 20120126, end: 20120222
  9. PEG-INTRON [Concomitant]
     Indication: HEPATITIS C
     Route: 058
     Dates: start: 20120126
  10. SEDEKOPAN [Concomitant]
     Route: 048
     Dates: start: 20120308
  11. TELAVIC (TELAPREVIR) [Suspect]
     Indication: HEPATITIS C
     Route: 048
     Dates: start: 20120126, end: 20120205
  12. TELAVIC (TELAPREVIR) [Suspect]
     Route: 048
     Dates: start: 20120223
  13. TELAVIC (TELAPREVIR) [Suspect]
     Route: 048
     Dates: start: 20120405, end: 20120407
  14. REBETOL [Concomitant]
     Route: 048
     Dates: start: 20120416
  15. GASMOTIN [Concomitant]
     Route: 048
     Dates: start: 20120127
  16. LOXONIN [Concomitant]
     Route: 048
  17. CONIEL [Concomitant]
     Route: 048
  18. TELAVIC (TELAPREVIR) [Suspect]
     Route: 048
     Dates: end: 20120404
  19. TELAVIC (TELAPREVIR) [Suspect]
     Route: 048
     Dates: start: 20120414, end: 20120418

REACTIONS (11)
  - HAEMOGLOBIN DECREASED [None]
  - RENAL IMPAIRMENT [None]
  - RASH [None]
  - PLATELET COUNT DECREASED [None]
  - PRURITUS [None]
  - RETICULOCYTE COUNT INCREASED [None]
  - HYPERURICAEMIA [None]
  - DECREASED APPETITE [None]
  - DIARRHOEA [None]
  - ANAEMIA [None]
  - ERYTHEMA [None]
